FAERS Safety Report 7690466-6 (Version None)
Quarter: 2011Q3

REPORT INFORMATION
  Report Type: 
  Country: None (occurrence: None)
  Receive Date: 20110818
  Receipt Date: 20110727
  Transmission Date: 20111222
  Serious: No
  Sender: FDA-Public Use
  Company Number: US-B.I. PHARMACEUTICALS,INC./RIDGEFIELD-2011-BP-16377BP

PATIENT
  Sex: Male

DRUGS (8)
  1. PRADAXA [Suspect]
     Indication: ATRIAL FIBRILLATION
     Dosage: 300 MG
     Route: 048
     Dates: start: 20110401
  2. TAMSULOSIN HCL [Concomitant]
  3. VITMAIN D [Concomitant]
     Dosage: 4000 MG
  4. SIMVASTATIN [Concomitant]
  5. ACEBUTOLOL [Concomitant]
  6. HCTZ/LOSARTAN [Concomitant]
     Indication: BLOOD PRESSURE
  7. GLYBURIDE [Concomitant]
  8. ALL VITAMINS [Concomitant]

REACTIONS (1)
  - HYPOTENSION [None]
